FAERS Safety Report 23048710 (Version 1)
Quarter: 2023Q4

REPORT INFORMATION
  Report Type: Spontaneous
  Country: RU (occurrence: RU)
  Receive Date: 20231010
  Receipt Date: 20231010
  Transmission Date: 20240110
  Serious: Yes (Other)
  Sender: FDA-Public Use
  Company Number: RU-002147023-NVSC2023RU213540

PATIENT
  Sex: Female

DRUGS (2)
  1. EVEROLIMUS [Suspect]
     Active Substance: EVEROLIMUS
     Indication: Liver transplant
     Dosage: UNK, (CONCENTRATION IN THE BLOOD: 7.3?8.9 NG/ML)
     Route: 065
  2. EVEROLIMUS [Suspect]
     Active Substance: EVEROLIMUS
     Indication: Immunosuppressant drug therapy
     Dosage: 1 MG, QD
     Route: 065

REACTIONS (5)
  - Graft versus host disease in skin [Unknown]
  - Concomitant disease aggravated [Unknown]
  - Agranulocytosis [Unknown]
  - Renal impairment [Unknown]
  - Systemic candida [Unknown]
